FAERS Safety Report 5347255-7 (Version None)
Quarter: 2007Q2

REPORT INFORMATION
  Report Type: 
  Country: None (occurrence: None)
  Receive Date: 20070606
  Receipt Date: 20070529
  Transmission Date: 20071010
  Serious: Yes (Other)
  Sender: FDA-Public Use
  Company Number: PHEH2007US03583

PATIENT
  Age: 70 Year
  Sex: Male

DRUGS (1)
  1. SANDOSTATIN LAR [Suspect]
     Indication: CARCINOID SYNDROME
     Dosage: UNK, UNK
     Route: 030
     Dates: start: 20020701, end: 20060901

REACTIONS (3)
  - DIARRHOEA [None]
  - FLUSHING [None]
  - LOSS OF CONSCIOUSNESS [None]
